FAERS Safety Report 20911116 (Version 1)
Quarter: 2022Q2

REPORT INFORMATION
  Report Type: Spontaneous
  Country: US (occurrence: None)
  Receive Date: 20220602
  Receipt Date: 20220602
  Transmission Date: 20220721
  Serious: Yes (Life-Threatening, Hospitalization)
  Sender: FDA-Public Use
  Company Number: None

PATIENT
  Age: 65 Year
  Sex: Female
  Weight: 54 kg

DRUGS (11)
  1. JARDIANCE [Suspect]
     Active Substance: EMPAGLIFLOZIN
     Indication: Cardiac failure
     Dates: start: 20220506, end: 20220527
  2. XANAX [Concomitant]
     Active Substance: ALPRAZOLAM
  3. propaf [Concomitant]
  4. ELIQUIS [Concomitant]
     Active Substance: APIXABAN
  5. valacyc. [Concomitant]
  6. Metapropol [Concomitant]
  7. FUROSE [Concomitant]
  8. COENZYME Q10 [Concomitant]
     Active Substance: DIETARY SUPPLEMENT\UBIDECARENONE
  9. VITAMIN C [Concomitant]
     Active Substance: ASCORBIC ACID
  10. ZINC [Concomitant]
     Active Substance: ZINC
  11. VITAMIN D3 [Concomitant]
     Active Substance: CHOLECALCIFEROL

REACTIONS (7)
  - Gastric disorder [None]
  - Vomiting [None]
  - Diarrhoea [None]
  - Eye disorder [None]
  - Sensation of foreign body [None]
  - Cardiogenic shock [None]
  - Organ failure [None]

NARRATIVE: CASE EVENT DATE: 20220529
